FAERS Safety Report 16508413 (Version 1)
Quarter: 2019Q3

REPORT INFORMATION
  Report Type: Spontaneous
  Country: US (occurrence: US)
  Receive Date: 20190702
  Receipt Date: 20190702
  Transmission Date: 20191004
  Serious: Yes (Hospitalization)
  Sender: FDA-Public Use
  Company Number: US-ROCHE-2237375

PATIENT
  Sex: Female

DRUGS (2)
  1. XELODA [Suspect]
     Active Substance: CAPECITABINE
     Indication: NEOPLASM MALIGNANT
     Dosage: 4 TABS IN AM DAYS 1-14 OF 21 DAY CYCLE
     Route: 048
  2. XELODA [Suspect]
     Active Substance: CAPECITABINE
     Route: 048
     Dates: start: 20181203

REACTIONS (4)
  - Pharyngeal ulceration [Recovering/Resolving]
  - Feeding disorder [Not Recovered/Not Resolved]
  - Diarrhoea [Unknown]
  - Stomatitis [Recovering/Resolving]
